FAERS Safety Report 14028867 (Version 2)
Quarter: 2017Q4

REPORT INFORMATION
  Report Type: Report from Study
  Country: US (occurrence: US)
  Receive Date: 20170930
  Receipt Date: 20171005
  Transmission Date: 20180321
  Serious: No
  Sender: FDA-Public Use
  Company Number: US-SA-2017SA091674

PATIENT
  Age: 51 Year
  Sex: Female
  Weight: 56.69 kg

DRUGS (6)
  1. VITAMIN E [Concomitant]
     Active Substance: .ALPHA.-TOCOPHEROL
     Indication: SKIN DISORDER
     Route: 065
  2. AUBAGIO [Suspect]
     Active Substance: TERIFLUNOMIDE
     Indication: MULTIPLE SCLEROSIS
     Route: 048
     Dates: start: 20160229, end: 20170418
  3. BACLOFEN. [Concomitant]
     Active Substance: BACLOFEN
     Indication: HYPOTONIA
     Dosage: FREQUENCY: 2-3 TIMES DAILY
     Route: 065
  4. AUBAGIO [Suspect]
     Active Substance: TERIFLUNOMIDE
     Indication: MULTIPLE SCLEROSIS
     Route: 048
     Dates: end: 201706
  5. LEVOTHYROXINE. [Concomitant]
     Active Substance: LEVOTHYROXINE
     Indication: THYROIDECTOMY
     Route: 065
     Dates: start: 201008
  6. CLONAZEPAM. [Concomitant]
     Active Substance: CLONAZEPAM
     Indication: RESTLESS LEGS SYNDROME
     Route: 065

REACTIONS (11)
  - Cough [Recovered/Resolved]
  - Memory impairment [Unknown]
  - Pharyngeal ulceration [Recovering/Resolving]
  - Pruritus [Recovering/Resolving]
  - Nausea [Unknown]
  - Unevaluable event [Unknown]
  - Diarrhoea [Unknown]
  - Vomiting [Unknown]
  - Rash [Recovering/Resolving]
  - Nasopharyngitis [Unknown]
  - Burning sensation [Unknown]

NARRATIVE: CASE EVENT DATE: 201610
